FAERS Safety Report 6016556-1 (Version None)
Quarter: 2008Q4

REPORT INFORMATION
  Report Type: 
  Country: None (occurrence: None)
  Receive Date: 20081222
  Receipt Date: 20081212
  Transmission Date: 20090506
  Serious: Yes (Congenital Anomaly)
  Sender: FDA-Public Use
  Company Number: US-JNJFOC-20081204140

PATIENT
  Sex: Male
  Weight: 2.32 kg

DRUGS (1)
  1. TOPAMAX [Suspect]
     Indication: DRUG USE FOR UNKNOWN INDICATION

REACTIONS (7)
  - CONGENITAL ANOMALY [None]
  - DYSPHAGIA [None]
  - FOETAL GROWTH RETARDATION [None]
  - GASTROOESOPHAGEAL REFLUX DISEASE [None]
  - HEART DISEASE CONGENITAL [None]
  - HIGH ARCHED PALATE [None]
  - LIMB MALFORMATION [None]
